FAERS Safety Report 7947947-7 (Version None)
Quarter: 2011Q4

REPORT INFORMATION
  Report Type: 
  Country: None (occurrence: None)
  Receive Date: 20111123
  Receipt Date: 20111114
  Transmission Date: 20120403
  Serious: Yes (Other)
  Sender: FDA-Public Use
  Company Number: 42409

PATIENT
  Age: 17 Year
  Sex: Male
  Weight: 79.3795 kg

DRUGS (1)
  1. OXY PURIFYING FACE SCRUB, 2% SALICYLIC ACID [Suspect]
     Indication: ACNE
     Dosage: 1X, 2 DAYS, TOPICAL
     Route: 061
     Dates: start: 20111112, end: 20111113

REACTIONS (4)
  - SWELLING [None]
  - PRURITUS [None]
  - DRUG HYPERSENSITIVITY [None]
  - ERYTHEMA [None]
